FAERS Safety Report 14497750 (Version 1)
Quarter: 2018Q1

REPORT INFORMATION
  Report Type: Spontaneous
  Country: IL (occurrence: IL)
  Receive Date: 20180207
  Receipt Date: 20180207
  Transmission Date: 20180509
  Serious: Yes (Other)
  Sender: FDA-Public Use
  Company Number: IL-KAMADA LIMITED-2018IL001334

PATIENT

DRUGS (8)
  1. GLASSIA [Suspect]
     Active Substance: .ALPHA.1-PROTEINASE INHIBITOR HUMAN
     Indication: ALPHA-1 ANTI-TRYPSIN DEFICIENCY
     Dosage: 18 G, MONTHLY
     Route: 065
     Dates: start: 2017
  2. GLASSIA [Suspect]
     Active Substance: .ALPHA.1-PROTEINASE INHIBITOR HUMAN
     Dosage: 20 G, MONTHLY FOR 3 MONTHS
     Route: 065
     Dates: start: 20170601
  3. LIPITOR [Concomitant]
     Active Substance: ATORVASTATIN CALCIUM
     Dosage: 20 MG, UNK
  4. GLASSIA [Suspect]
     Active Substance: .ALPHA.1-PROTEINASE INHIBITOR HUMAN
     Dosage: 25 G, MONTHLY
     Route: 065
     Dates: start: 20170928
  5. GLASSIA [Suspect]
     Active Substance: .ALPHA.1-PROTEINASE INHIBITOR HUMAN
     Dosage: UNK, TWICE A MONTH
     Route: 065
     Dates: start: 2017
  6. GLASSIA [Suspect]
     Active Substance: .ALPHA.1-PROTEINASE INHIBITOR HUMAN
     Dosage: UNK, Q3WEEKS
     Route: 065
     Dates: start: 2017
  7. GLASSIA [Suspect]
     Active Substance: .ALPHA.1-PROTEINASE INHIBITOR HUMAN
     Dosage: UNK, MONTHLY
     Route: 065
     Dates: start: 2017
  8. GLASSIA [Suspect]
     Active Substance: .ALPHA.1-PROTEINASE INHIBITOR HUMAN
     Dosage: UNK, Q3WEEKS
     Route: 065
     Dates: start: 2017

REACTIONS (9)
  - Arthritis [Recovered/Resolved]
  - Discomfort [Recovered/Resolved]
  - Bronchitis [Not Recovered/Not Resolved]
  - Alpha-1 anti-trypsin abnormal [Unknown]
  - Conjunctivitis [Recovered/Resolved]
  - Pneumonia [Recovered/Resolved]
  - Inappropriate schedule of drug administration [Unknown]
  - Incorrect dose administered [Unknown]
  - Urinary tract infection [Recovered/Resolved]

NARRATIVE: CASE EVENT DATE: 2017
